FAERS Safety Report 5900115-2 (Version None)
Quarter: 2008Q3

REPORT INFORMATION
  Report Type: 
  Country: None (occurrence: None)
  Receive Date: 20080924
  Receipt Date: 20080911
  Transmission Date: 20090109
  Serious: Yes (Hospitalization)
  Sender: FDA-Public Use
  Company Number: 1000000234

PATIENT
  Age: 64 Year
  Sex: Female

DRUGS (6)
  1. ESCITALOPRAM [Suspect]
     Indication: DEPRESSION
     Dosage: 10 MG (10 MG, 1 IN 1 D), ORAL
     Route: 048
     Dates: start: 20050101, end: 20080601
  2. CO-APROVEL (CAPSULES) [Suspect]
     Indication: ESSENTIAL HYPERTENSION
     Dosage: 2 IN 1 M), ORAL
     Route: 048
     Dates: start: 20050101, end: 20080601
  3. BECOZYME (TABLETS) [Concomitant]
  4. BENERVA (TABLETS) [Concomitant]
  5. IMPORTAL (TABLETS) [Concomitant]
  6. SUPRADYN (TABLETS) [Concomitant]

REACTIONS (9)
  - ALCOHOL WITHDRAWAL SYNDROME [None]
  - BILIARY TRACT DISORDER [None]
  - GASTROOESOPHAGEAL REFLUX DISEASE [None]
  - HEPATIC INFILTRATION EOSINOPHILIC [None]
  - HEPATIC STEATOSIS [None]
  - HEPATITIS CHOLESTATIC [None]
  - OESOPHAGEAL ULCER [None]
  - PRURITUS [None]
  - SINUS DISORDER [None]
